FAERS Safety Report 8955479 (Version 7)
Quarter: 2014Q4

REPORT INFORMATION
  Report Type: Spontaneous
  Country: US (occurrence: US)
  Receive Date: 20121210
  Receipt Date: 20141211
  Transmission Date: 20150529
  Serious: Yes (Death, Hospitalization, Disabling, Other)
  Sender: FDA-Public Use
  Company Number: US-009507513-1211USA012890

PATIENT
  Sex: Female
  Weight: 56.69 kg

DRUGS (4)
  1. JANUVIA [Suspect]
     Active Substance: SITAGLIPTIN PHOSPHATE
     Indication: TYPE 2 DIABETES MELLITUS
     Dosage: 25-50 MG, QD
     Route: 048
     Dates: end: 20100915
  2. INSULIN [Concomitant]
     Active Substance: INSULIN NOS
     Indication: TYPE 2 DIABETES MELLITUS
  3. METFORMIN [Concomitant]
     Active Substance: METFORMIN HYDROCHLORIDE
     Indication: TYPE 2 DIABETES MELLITUS
     Dosage: UNK
  4. PREDNISONE. [Concomitant]
     Active Substance: PREDNISONE
     Indication: ASTHMA

REACTIONS (63)
  - Pancreatic carcinoma metastatic [Fatal]
  - Cardio-respiratory arrest [Fatal]
  - Paralysis [Unknown]
  - Lymphoplasmacytoid lymphoma/immunocytoma [Unknown]
  - Device issue [Unknown]
  - Blood glucose increased [Unknown]
  - Pulmonary mass [Unknown]
  - Oophorectomy [Unknown]
  - Back pain [Unknown]
  - Small intestinal obstruction [Unknown]
  - Pneumonia [Unknown]
  - Septic shock [Unknown]
  - Respiratory disorder [Unknown]
  - Lobar pneumonia [Recovered/Resolved]
  - Upper gastrointestinal haemorrhage [Unknown]
  - Chronic obstructive pulmonary disease [Not Recovered/Not Resolved]
  - Pulmonary mass [Unknown]
  - Osteoporosis [Unknown]
  - Occult blood positive [Unknown]
  - Electrocardiogram ST segment abnormal [Unknown]
  - Chest discomfort [Unknown]
  - Vomiting [Unknown]
  - Small intestinal obstruction [Unknown]
  - Reticulocyte count increased [Unknown]
  - Osteopenia [Unknown]
  - Facial pain [Unknown]
  - Constipation [Unknown]
  - Waldenstrom^s macroglobulinaemia [Unknown]
  - Oesophageal candidiasis [Unknown]
  - Hernia hiatus repair [Unknown]
  - Hiatus hernia [Unknown]
  - Osteoarthritis [Unknown]
  - Gastrooesophageal reflux disease [Unknown]
  - Myalgia [Unknown]
  - Metastases to liver [Unknown]
  - Metastases to peritoneum [Unknown]
  - Lymphoma [Unknown]
  - Mastoiditis [Unknown]
  - Otitis media [Unknown]
  - Urosepsis [Unknown]
  - Abdominal pain [Unknown]
  - Dysuria [Unknown]
  - Irritable bowel syndrome [Unknown]
  - Blood disorder [Unknown]
  - Dizziness [Unknown]
  - Drug ineffective [Unknown]
  - Drug ineffective [Unknown]
  - Herpes zoster [Unknown]
  - Brain abscess [Unknown]
  - Hypercholesterolaemia [Unknown]
  - Familial tremor [Unknown]
  - Peripheral swelling [Unknown]
  - Asthma [Unknown]
  - Upper gastrointestinal haemorrhage [Unknown]
  - Bronchial hyperreactivity [Unknown]
  - Appendicectomy [Unknown]
  - Iron deficiency anaemia [Unknown]
  - Thrombocytosis [Unknown]
  - White blood cell count increased [Unknown]
  - Blood pressure decreased [Recovered/Resolved]
  - Hypertension [Unknown]
  - Anxiety [Not Recovered/Not Resolved]
  - Abdominal pain [Unknown]

NARRATIVE: CASE EVENT DATE: 20081108
